FAERS Safety Report 5785947-6 (Version None)
Quarter: 2008Q2

REPORT INFORMATION
  Report Type: 
  Country: None (occurrence: None)
  Receive Date: 20080620
  Receipt Date: 20080620
  Transmission Date: 20081010
  Serious: Yes (Death)
  Sender: FDA-Public Use
  Company Number: None

PATIENT
  Age: 64 Year
  Sex: Male
  Weight: 61.8 kg

DRUGS (3)
  1. VARENICLINE 1MG PFIZER [Suspect]
     Indication: EX-SMOKER
     Dosage: 1 MG BID PO
     Route: 048
     Dates: start: 20071201, end: 20080119
  2. IPRATROPIUM/ALBUTEROL MDI BOEHRINGER INGELHEIM [Suspect]
     Indication: CHRONIC OBSTRUCTIVE PULMONARY DISEASE
     Dosage: 2 PUFFS TID INHAL
     Route: 055
     Dates: start: 20071123, end: 20080119
  3. LEVOFLOXACIN [Concomitant]

REACTIONS (2)
  - ARRHYTHMIA [None]
  - LOSS OF CONSCIOUSNESS [None]
